FAERS Safety Report 8652317 (Version 7)
Quarter: 2014Q3

REPORT INFORMATION
  Report Type: Spontaneous
  Country: US (occurrence: US)
  Receive Date: 20120706
  Receipt Date: 20140804
  Transmission Date: 20150326
  Serious: Yes (Other)
  Sender: FDA-Public Use
  Company Number: US-PFIZER INC-2012159475

PATIENT
  Age: 62 Year
  Sex: Male

DRUGS (3)
  1. INLYTA [Suspect]
     Active Substance: AXITINIB
     Dosage: UNK
  2. INLYTA [Suspect]
     Active Substance: AXITINIB
     Dosage: 5 MG, 2X/DAY
     Route: 048
     Dates: start: 20120626
  3. INLYTA [Suspect]
     Active Substance: AXITINIB
     Indication: RENAL CELL CARCINOMA
     Dosage: 5 MG, ONCE DAILY WITH SEVERAL DRUG HOLIDAYS FROM 1-2 WEEKS TO 4 WEEKS
     Route: 048
     Dates: start: 20120622

REACTIONS (31)
  - Asthenia [Unknown]
  - Rash [Unknown]
  - Decreased appetite [Unknown]
  - Gingival recession [Unknown]
  - Nocturia [Unknown]
  - Skin wrinkling [Unknown]
  - Anaemia [Unknown]
  - Pruritus [Recovered/Resolved]
  - Limb discomfort [Unknown]
  - Dysgeusia [Unknown]
  - Fatigue [Unknown]
  - Weight decreased [Unknown]
  - Tongue blistering [Unknown]
  - Diarrhoea [Unknown]
  - Hair disorder [Recovering/Resolving]
  - Aphonia [Unknown]
  - Haematochezia [Unknown]
  - Constipation [Unknown]
  - Blood pressure increased [Unknown]
  - Headache [Unknown]
  - Dysphonia [Unknown]
  - Dizziness [Unknown]
  - Glossodynia [Unknown]
  - Nausea [Unknown]
  - Syncope [Unknown]
  - Visual impairment [Unknown]
  - Musculoskeletal chest pain [Unknown]
  - Muscle atrophy [Unknown]
  - Somnolence [Unknown]
  - Heart rate increased [Unknown]
  - Oropharyngeal pain [Unknown]

NARRATIVE: CASE EVENT DATE: 2012
